FAERS Safety Report 9730006 (Version 1)
Quarter: 2013Q4

REPORT INFORMATION
  Report Type: Spontaneous
  Country: PL (occurrence: PL)
  Receive Date: 20131204
  Receipt Date: 20131204
  Transmission Date: 20140711
  Serious: Yes (Other)
  Sender: FDA-Public Use
  Company Number: CHPA2013PL017866

PATIENT
  Age: 18 Year
  Sex: Female

DRUGS (1)
  1. THERAFLU EXTRAGRIP [Suspect]
     Dosage: UNK
     Route: 048

REACTIONS (3)
  - Laryngeal obstruction [Recovering/Resolving]
  - Dysphagia [Recovering/Resolving]
  - Rash generalised [Recovering/Resolving]
